FAERS Safety Report 19442793 (Version 2)
Quarter: 2021Q3

REPORT INFORMATION
  Report Type: Spontaneous
  Country: US (occurrence: US)
  Receive Date: 20210621
  Receipt Date: 20210701
  Transmission Date: 20211014
  Serious: No
  Sender: FDA-Public Use
  Company Number: US-ELI_LILLY_AND_COMPANY-US202106009465

PATIENT
  Age: 51 Year
  Sex: Male

DRUGS (1)
  1. EMGALITY [Suspect]
     Active Substance: GALCANEZUMAB-GNLM
     Indication: CLUSTER HEADACHE
     Dosage: 300 MG, SINGLE (LOADING DOSE)
     Route: 058
     Dates: start: 20210616

REACTIONS (8)
  - Somnolence [Unknown]
  - Drug ineffective [Not Recovered/Not Resolved]
  - Product administered at inappropriate site [Unknown]
  - Injection site pruritus [Unknown]
  - Cluster headache [Not Recovered/Not Resolved]
  - Dizziness [Unknown]
  - Injection site swelling [Unknown]
  - Sleep disorder due to general medical condition, insomnia type [Not Recovered/Not Resolved]

NARRATIVE: CASE EVENT DATE: 20210617
